FAERS Safety Report 4505168-4 (Version None)
Quarter: 2004Q4

REPORT INFORMATION
  Report Type: 
  Country: None (occurrence: None)
  Receive Date: 20041118
  Receipt Date: 20041118
  Transmission Date: 20050328
  Serious: No
  Sender: FDA-Public Use
  Company Number: None

PATIENT
  Age: 81 Year
  Sex: Female
  Weight: 83.9154 kg

DRUGS (18)
  1. ARIXTRA [Suspect]
     Indication: DEEP VENOUS THROMBOSIS PROPHYLAXIS
     Dosage: 10MG  QDAY  SUBCUTANEOUS
     Route: 058
     Dates: start: 20041109, end: 20041109
  2. ARIXTRA [Suspect]
     Indication: HEPARIN-INDUCED THROMBOCYTOPENIA
     Dosage: 10MG  QDAY  SUBCUTANEOUS
     Route: 058
     Dates: start: 20041109, end: 20041109
  3. ETHAMBUTOL [Concomitant]
  4. ISONIAZID [Concomitant]
  5. AMLODIPINE [Concomitant]
  6. CALCIUM ACETATE [Concomitant]
  7. CITALOPRAM [Concomitant]
  8. CITRATE BUFFER [Concomitant]
  9. HYDROMORPHONE [Concomitant]
  10. HUMULIN R [Concomitant]
  11. LANSOPRAZOLE [Concomitant]
  12. LEVOTHYROXINE SODIUM [Concomitant]
  13. METOPROLOL [Concomitant]
  14. MIRALAX [Concomitant]
  15. PYRIDOXINE -VITAMIN B-6 [Concomitant]
  16. ACETAMINOPHEN [Concomitant]
  17. DOLASETRON [Concomitant]
  18. HYDROMORPHONE [Concomitant]

REACTIONS (1)
  - MEDICATION ERROR [None]
